FAERS Safety Report 23990841 (Version 3)
Quarter: 2025Q2

REPORT INFORMATION
  Report Type: Other
  Country: US (occurrence: US)
  Receive Date: 20240619
  Receipt Date: 20250428
  Transmission Date: 20250716
  Serious: No
  Sender: TRAVERE THERAPEUTICS
  Company Number: US-TRAVERE-2024TVT00524

PATIENT
  Age: 62 Year
  Sex: Female

DRUGS (1)
  1. FILSPARI [Suspect]
     Active Substance: SPARSENTAN
     Indication: IgA nephropathy
     Route: 048
     Dates: end: 202501

REACTIONS (6)
  - Upper respiratory tract infection [None]
  - Ear infection [None]
  - Conjunctivitis [Unknown]
  - Respiratory disorder [Recovered/Resolved]
  - Loss of personal independence in daily activities [Unknown]
  - Ill-defined disorder [Unknown]

NARRATIVE: CASE EVENT DATE: 20240901
